FAERS Safety Report 10011302 (Version 1)
Quarter: 2014Q1

REPORT INFORMATION
  Report Type: Spontaneous
  Country: US (occurrence: US)
  Receive Date: 20140314
  Receipt Date: 20140314
  Transmission Date: 20141002
  Serious: No
  Sender: FDA-Public Use
  Company Number: US-ENDO PHARMACEUTICALS INC.-OXYC20130031

PATIENT
  Sex: Male
  Weight: 78.54 kg

DRUGS (1)
  1. OXYCODONE HCL [Suspect]
     Indication: PAIN
     Route: 048
     Dates: end: 201304

REACTIONS (1)
  - Withdrawal syndrome [Recovered/Resolved]
